FAERS Safety Report 8867124 (Version 1)
Quarter: 2012Q4

REPORT INFORMATION
  Report Type: 
  Country: US (occurrence: US)
  Receive Date: 20121025
  Receipt Date: 20121025
  Transmission Date: 20130627
  Serious: No
  Sender: FDA-Public Use
  Company Number: US-AMGEN-USASP2012014853

PATIENT
  Age: 54 Year
  Sex: Female

DRUGS (13)
  1. ENBREL [Suspect]
     Indication: PRODUCT USED FOR UNKNOWN INDICATION
     Dosage: 50 mg, qwk
     Route: 058
  2. SYNTHROID [Concomitant]
     Dosage: 88 mug, UNK
  3. VESICARE [Concomitant]
     Dosage: 5 mg, UNK
  4. TOPAMAX [Concomitant]
     Dosage: 100 mg, UNK
  5. ZOMIG [Concomitant]
     Dosage: 5 mg, UNK
  6. CARNITINE [Concomitant]
     Dosage: 250 mg, UNK
  7. CHROMIUM PICOLINAT [Concomitant]
     Dosage: 800 mug, UNK
  8. CYMBALTA [Concomitant]
     Dosage: 30 mg, UNK
  9. GLUCOSAMINE [Concomitant]
     Dosage: 167 mg, UNK
  10. MAGNESIUM [Concomitant]
     Dosage: 500 mg, UNK
  11. MULTIVITAMIN                       /00097801/ [Concomitant]
     Dosage: UNK
  12. VITAMIN D3 [Concomitant]
     Dosage: UNK
  13. K-DUR [Concomitant]
     Dosage: 10 mEq, UNK

REACTIONS (1)
  - Drug ineffective [Unknown]
